FAERS Safety Report 4336494-X (Version None)
Quarter: 2004Q2

REPORT INFORMATION
  Report Type: 
  Country: None (occurrence: None)
  Receive Date: 20040409
  Receipt Date: 20040409
  Transmission Date: 20050107
  Serious: Yes (Other)
  Sender: FDA-Public Use
  Company Number: None

PATIENT
  Age: 61 Year
  Sex: Female

DRUGS (2)
  1. LEVAQUIN [Suspect]
     Indication: BRONCHITIS
     Dosage: 500 MG ONCE A DAY ORAL
     Route: 048
     Dates: start: 20040219, end: 20040224
  2. LEVAQUIN [Suspect]
     Indication: SINUSITIS
     Dosage: 500 MG ONCE A DAY ORAL
     Route: 048
     Dates: start: 20040219, end: 20040224

REACTIONS (3)
  - ARTHRALGIA [None]
  - PAIN [None]
  - TENDONITIS [None]
